FAERS Safety Report 8586862-5 (Version None)
Quarter: 2012Q3

REPORT INFORMATION
  Report Type: 
  Country: None (occurrence: None)
  Receive Date: 20120810
  Receipt Date: 20120726
  Transmission Date: 20120928
  Serious: Yes (Other)
  Sender: FDA-Public Use
  Company Number: CHPA2012US016968

PATIENT
  Age: 47 Year
  Sex: Female

DRUGS (4)
  1. DRUG THERAPY NOS [Concomitant]
     Dosage: UNK, UNK
  2. NICOTINE [Suspect]
     Indication: SMOKING CESSATION THERAPY
     Dosage: 21 MG, UNK
     Route: 062
     Dates: start: 20120725
  3. DRUG THERAPY NOS [Concomitant]
     Dosage: UNK, UNK
  4. NICOTINE [Suspect]
     Dosage: 14 MG, UNK
     Route: 062
     Dates: start: 20050101, end: 20100101

REACTIONS (4)
  - INJURY [None]
  - ROAD TRAFFIC ACCIDENT [None]
  - EXPIRED DRUG ADMINISTERED [None]
  - UNDERDOSE [None]
